FAERS Safety Report 9294166 (Version 2)
Quarter: 2013Q3

REPORT INFORMATION
  Report Type: Spontaneous
  Country: US (occurrence: US)
  Receive Date: 20130516
  Receipt Date: 20130706
  Transmission Date: 20140515
  Serious: No
  Sender: FDA-Public Use
  Company Number: US-ASTRAZENECA-2013SE31670

PATIENT
  Age: 87 Year
  Sex: Male
  Weight: 54.4 kg

DRUGS (2)
  1. SYMBICORT [Suspect]
     Indication: ASTHMA
     Dosage: 160/4.2, 2 PUFFS TWICE DAILY (320MCG BID)
     Route: 055
     Dates: start: 20130502
  2. PULMICORT FLEXHALER [Suspect]
     Route: 055

REACTIONS (1)
  - Oropharyngeal pain [Not Recovered/Not Resolved]
